FAERS Safety Report 11721246 (Version 2)
Quarter: 2015Q4

REPORT INFORMATION
  Report Type: Spontaneous
  Country: FR (occurrence: FR)
  Receive Date: 20151110
  Receipt Date: 20151230
  Transmission Date: 20160304
  Serious: Yes (Other)
  Sender: FDA-Public Use
  Company Number: FR-AMGEN-FRASP2015118006

PATIENT
  Age: 42 Year
  Sex: Female

DRUGS (1)
  1. XGEVA [Suspect]
     Active Substance: DENOSUMAB
     Indication: BONE GIANT CELL TUMOUR
     Dosage: 120 UNKNOWN, Q4WK
     Route: 058
     Dates: start: 201306

REACTIONS (2)
  - No therapeutic response [Unknown]
  - Metastasis [Recovered/Resolved]
